FAERS Safety Report 9979555 (Version 1)
Quarter: 2014Q1

REPORT INFORMATION
  Report Type: Spontaneous
  Country: US (occurrence: US)
  Receive Date: 20140306
  Receipt Date: 20140306
  Transmission Date: 20141002
  Serious: No
  Sender: FDA-Public Use
  Company Number: US-ABBVIE-13P-163-1171176-00

PATIENT
  Age: 50 Year
  Sex: Female
  Weight: 81.72 kg

DRUGS (10)
  1. HUMIRA [Suspect]
     Indication: PSORIASIS
     Dosage: STARTING DOSE
     Dates: start: 201310, end: 201310
  2. HUMIRA [Suspect]
     Dosage: START ONE WEEK AFTER FIRST DOSE
     Dates: start: 2013
  3. METHOTREXATE [Concomitant]
     Indication: PSORIASIS
  4. LEVOTHYROXINE [Concomitant]
     Indication: HYPOTHYROIDISM
  5. GABAPENTIN [Concomitant]
     Indication: PAIN IN EXTREMITY
  6. ESTRADIOL [Concomitant]
     Indication: BLOOD OESTROGEN
  7. FOLIC ACID [Concomitant]
     Indication: PRODUCT USED FOR UNKNOWN INDICATION
  8. SUBOXONE [Concomitant]
     Indication: BACK PAIN
  9. CLONAZEPAM [Concomitant]
     Indication: ANXIETY
  10. CLONAZEPAM [Concomitant]
     Indication: INSOMNIA

REACTIONS (4)
  - Respiratory tract congestion [Not Recovered/Not Resolved]
  - Oropharyngeal pain [Not Recovered/Not Resolved]
  - Sinus congestion [Not Recovered/Not Resolved]
  - Pyrexia [Not Recovered/Not Resolved]
